FAERS Safety Report 8568563-2 (Version None)
Quarter: 2012Q3

REPORT INFORMATION
  Report Type: 
  Country: None (occurrence: None)
  Receive Date: 20120803
  Receipt Date: 20120208
  Transmission Date: 20120928
  Serious: No
  Sender: FDA-Public Use
  Company Number: US-ABBOTT-12P-163-0902607-00

PATIENT
  Sex: Female
  Weight: 62.198 kg

DRUGS (3)
  1. WELCHOL [Concomitant]
     Indication: PRODUCT USED FOR UNKNOWN INDICATION
  2. NIASPAN [Suspect]
     Indication: BLOOD CHOLESTEROL
     Dates: start: 20100501
  3. SYNTHROID [Concomitant]
     Indication: PRODUCT USED FOR UNKNOWN INDICATION

REACTIONS (4)
  - GASTROOESOPHAGEAL REFLUX DISEASE [None]
  - MUSCULOSKELETAL PAIN [None]
  - MUSCULAR WEAKNESS [None]
  - FLUSHING [None]
